FAERS Safety Report 13864608 (Version 2)
Quarter: 2017Q3

REPORT INFORMATION
  Report Type: Spontaneous
  Country: BR (occurrence: BR)
  Receive Date: 20170814
  Receipt Date: 20170814
  Transmission Date: 20171127
  Serious: Yes (Other)
  Sender: FDA-Public Use
  Company Number: PHHY2017BR118120

PATIENT
  Age: 65 Year
  Sex: Male

DRUGS (2)
  1. ADALIMUMAB [Concomitant]
     Active Substance: ADALIMUMAB
     Indication: PRODUCT USED FOR UNKNOWN INDICATION
     Dosage: UNK
     Route: 065
  2. CICLOSPORIN [Suspect]
     Active Substance: CYCLOSPORINE
     Indication: PSORIASIS
     Dosage: 5 MG/KG, QD
     Route: 065
     Dates: start: 2015

REACTIONS (9)
  - Laboratory test abnormal [Unknown]
  - Hypertension [Unknown]
  - Pruritus [Unknown]
  - Blood albumin increased [Unknown]
  - Skin lesion [Unknown]
  - Psoriasis area severity index increased [Unknown]
  - Psoriasis [Unknown]
  - Obesity [Unknown]
  - Adjustment disorder with depressed mood [Unknown]

NARRATIVE: CASE EVENT DATE: 201703
